FAERS Safety Report 9542545 (Version 2)
Quarter: 2014Q1

REPORT INFORMATION
  Report Type: Spontaneous
  Country: US (occurrence: None)
  Receive Date: 20130524
  Receipt Date: 20130724
  Transmission Date: 20141002
  Serious: Yes (Other)
  Sender: FDA-Public Use
  Company Number: PHEH2011US013266

PATIENT
  Age: 40 Year
  Sex: Female
  Weight: 83.9 kg

DRUGS (12)
  1. GILENYA [Suspect]
     Indication: MULTIPLE SCLEROSIS
     Route: 048
     Dates: start: 20111208
  2. AMBIEN (ZOLPIDEM TARTRATE) [Concomitant]
  3. ZOLOFT (SERTRALINE HYDROCHLORIDE) [Concomitant]
  4. LEVOTHYROXIN (LEVOTHYROXINE SODIUM) [Concomitant]
  5. FIORICET (BUTALBITAL, CAFFEINE, PARACETAMOL) [Concomitant]
  6. ADDERALL (AMFETAMINE ASPARTATE, AMFETAMINE SULFATE, DEXAMFETAMINE SACCHARATE, DEXAMFETAMINE SULFATE) [Concomitant]
  7. AMANTADINE [Concomitant]
  8. VIT D3 (COLECALCIFEROL) [Concomitant]
  9. TOPIRAMATE (TOPIRAMATE) [Concomitant]
  10. SUMATRIPTAN (SUMATRIPTAN) [Concomitant]
  11. ALEVE (NAPROXEN SODIUM) [Concomitant]
  12. VIT B COMPLEX (VITAMIN B COMPLEX) [Concomitant]

REACTIONS (3)
  - Bradycardia [None]
  - Palpitations [None]
  - Dyspnoea [None]
